FAERS Safety Report 10970220 (Version 1)
Quarter: 2015Q1

REPORT INFORMATION
  Report Type: Spontaneous
  Country: US (occurrence: US)
  Receive Date: 20150331
  Receipt Date: 20150331
  Transmission Date: 20150721
  Serious: Yes (Other)
  Sender: FDA-Public Use
  Company Number: US-MYLANLABS-2015M1010075

PATIENT

DRUGS (9)
  1. GABAPENTIN. [Suspect]
     Active Substance: GABAPENTIN
     Indication: PAIN
     Route: 065
  2. LORAZEPAM. [Suspect]
     Active Substance: LORAZEPAM
     Indication: PAIN
     Route: 065
  3. LORAZEPAM. [Suspect]
     Active Substance: LORAZEPAM
     Indication: OFF LABEL USE
  4. FENTANYL. [Suspect]
     Active Substance: FENTANYL
     Indication: PAIN
     Route: 002
  5. DIAZEPAM. [Suspect]
     Active Substance: DIAZEPAM
     Indication: OFF LABEL USE
  6. DIAZEPAM. [Suspect]
     Active Substance: DIAZEPAM
     Indication: PAIN
     Route: 065
  7. METHADONE [Suspect]
     Active Substance: METHADONE HYDROCHLORIDE
     Indication: PAIN
     Route: 065
  8. FLUOROURACIL. [Suspect]
     Active Substance: FLUOROURACIL
     Indication: SQUAMOUS CELL CARCINOMA
     Route: 065
  9. HYDROMORPHONE [Suspect]
     Active Substance: HYDROMORPHONE
     Indication: PAIN
     Route: 048

REACTIONS (11)
  - Nausea [Unknown]
  - Vomiting [Unknown]
  - Renal failure [Not Recovered/Not Resolved]
  - Vulval ulceration [Unknown]
  - Vulvar erosion [Unknown]
  - Anal erosion [Unknown]
  - Somnolence [Unknown]
  - Urethral disorder [Unknown]
  - Urinary retention [Unknown]
  - Anal ulcer [Unknown]
  - Urethral ulcer [Unknown]
